FAERS Safety Report 13998587 (Version 7)
Quarter: 2018Q1

REPORT INFORMATION
  Report Type: Spontaneous
  Country: US (occurrence: US)
  Receive Date: 20170922
  Receipt Date: 20180319
  Transmission Date: 20180508
  Serious: Yes (Other)
  Sender: FDA-Public Use
  Company Number: US-PFIZER INC-2017405899

PATIENT
  Age: 72 Year
  Sex: Female

DRUGS (28)
  1. ASPIRIN EC [Concomitant]
     Active Substance: ASPIRIN
     Dosage: UNK
  2. IBRANCE [Suspect]
     Active Substance: PALBOCICLIB
     Indication: BREAST CANCER METASTATIC
     Dosage: 125 MG, CYCLIC, (TAKE 1 CAPSULE BY MOUTH EVERY DAY WITH FOOD FOR 21 DAYS, THEN 7 DAYS OFF)
     Route: 048
     Dates: start: 20170907, end: 2017
  3. FASLODEX [Concomitant]
     Active Substance: FULVESTRANT
     Dosage: 500 MG, MONTHLY
     Dates: start: 20170907
  4. BIOTIN [Concomitant]
     Active Substance: BIOTIN
     Dosage: UNK
  5. CHROMIUM PIC [Concomitant]
     Dosage: UNK
  6. VITAMIN E [Concomitant]
     Active Substance: .ALPHA.-TOCOPHEROL
     Dosage: UNK
  7. ZOMETA [Concomitant]
     Active Substance: ZOLEDRONIC ACID
     Dosage: 4 MG, UNK (IVPB )
     Dates: start: 20171005
  8. IBRANCE [Suspect]
     Active Substance: PALBOCICLIB
     Dosage: 100 MG, CYCLIC [ONCE DAILY FOR 21 DAYS, THEN 7 DAYS OFF]
     Route: 048
     Dates: start: 20171107
  9. GARLIC. [Concomitant]
     Active Substance: GARLIC
     Dosage: UNK
  10. BROMELAIN [Concomitant]
     Active Substance: BROMELAINS
     Dosage: UNK
  11. IBRANCE [Suspect]
     Active Substance: PALBOCICLIB
     Dosage: 100 MG, CYCLIC (D1-21 EVERY 28 DAYS)
     Route: 048
     Dates: start: 20171117
  12. FASLODEX [Concomitant]
     Active Substance: FULVESTRANT
     Dosage: 500 G, MONTHLY
     Route: 030
     Dates: start: 20180111
  13. ZINC. [Concomitant]
     Active Substance: ZINC
     Dosage: UNK
  14. FLAX SEED OI [Concomitant]
     Dosage: UNK
  15. VITAMIN K [Concomitant]
     Active Substance: PHYTONADIONE
     Dosage: UNK
  16. AMLODIPINE B [Concomitant]
     Dosage: UNK
  17. VITAMIN A [Concomitant]
     Active Substance: VITAMIN A
     Dosage: UNK
  18. BOSWELLIA SE [Concomitant]
     Dosage: UNK
  19. FOLIC ACID. [Concomitant]
     Active Substance: FOLIC ACID
     Dosage: UNK
  20. GINGER. [Concomitant]
     Active Substance: GINGER
     Dosage: UNK
  21. IRON [Concomitant]
     Active Substance: IRON
     Dosage: UNK
  22. FASLODEX [Concomitant]
     Active Substance: FULVESTRANT
     Indication: BREAST CANCER
     Dosage: UNK,CONTINUES MONTHLY
     Dates: start: 20150122
  23. FASLODEX [Concomitant]
     Active Substance: FULVESTRANT
     Dosage: 500 G, MONTHLY
     Route: 030
     Dates: start: 20150122
  24. FASLODEX [Concomitant]
     Active Substance: FULVESTRANT
     Dosage: 500 G, MONTHLY
     Route: 030
     Dates: start: 20171214
  25. GLUCOSAMINE [Concomitant]
     Active Substance: GLUCOSAMINE
     Dosage: UNK
  26. ZOMETA [Concomitant]
     Active Substance: ZOLEDRONIC ACID
     Indication: METASTASES TO BONE
     Dosage: 4 MG, EVERY 3 MONTHS
     Dates: start: 20130923
  27. ZOMETA [Concomitant]
     Active Substance: ZOLEDRONIC ACID
     Indication: BREAST CANCER
     Dosage: 4 MG, UNK (IVPB)(CONTINUES EVERY 3 MONTHS)
     Dates: start: 20170706
  28. ZOMETA [Concomitant]
     Active Substance: ZOLEDRONIC ACID
     Dosage: 4 G, EVERY 3 MONTHS (IVPB)(CONTINUES)
     Dates: start: 20180111

REACTIONS (9)
  - Neutropenia [Unknown]
  - Flatulence [Not Recovered/Not Resolved]
  - Fatigue [Not Recovered/Not Resolved]
  - Alopecia [Not Recovered/Not Resolved]
  - Bone pain [Not Recovered/Not Resolved]
  - Paraesthesia oral [Recovered/Resolved]
  - Rash papular [Not Recovered/Not Resolved]
  - White blood cell count decreased [Not Recovered/Not Resolved]
  - Vision blurred [Not Recovered/Not Resolved]

NARRATIVE: CASE EVENT DATE: 2017
